FAERS Safety Report 14797057 (Version 1)
Quarter: 2018Q2

REPORT INFORMATION
  Report Type: Spontaneous
  Country: US (occurrence: US)
  Receive Date: 20180423
  Receipt Date: 20180423
  Transmission Date: 20180711
  Serious: No
  Sender: FDA-Public Use
  Company Number: US-SA-2017SA208442

PATIENT
  Age: 67 Year
  Sex: Male
  Weight: 82.5 kg

DRUGS (14)
  1. JANTOVEN [Suspect]
     Active Substance: WARFARIN SODIUM
     Indication: THROMBOSIS PROPHYLAXIS
     Dosage: FRE IS TWICE A WEEK (ON SATURDAY AND SUNDAY),
     Route: 048
     Dates: start: 2017, end: 20170829
  2. ROSUVASTATIN. [Concomitant]
     Active Substance: ROSUVASTATIN
     Route: 048
  3. TRAZODONE [Concomitant]
     Active Substance: TRAZODONE HYDROCHLORIDE
     Dosage: TRAZODONE IN THE EVENING
     Route: 065
  4. JANTOVEN [Suspect]
     Active Substance: WARFARIN SODIUM
     Indication: THROMBOSIS PROPHYLAXIS
     Route: 048
     Dates: start: 20170829, end: 20170902
  5. WARFARIN [Suspect]
     Active Substance: WARFARIN
     Indication: THROMBOSIS PROPHYLAXIS
     Route: 048
     Dates: start: 20170905
  6. ASPIRIN. [Concomitant]
     Active Substance: ASPIRIN
     Route: 048
  7. JANTOVEN [Suspect]
     Active Substance: WARFARIN SODIUM
     Indication: ENTEROSTOMY
     Route: 048
     Dates: start: 201501, end: 20170905
  8. LOVENOX [Suspect]
     Active Substance: ENOXAPARIN SODIUM
     Indication: INTERNATIONAL NORMALISED RATIO DECREASED
     Route: 058
     Dates: start: 20170830, end: 20170902
  9. JANTOVEN [Suspect]
     Active Substance: WARFARIN SODIUM
     Indication: ENTEROSTOMY
     Route: 065
     Dates: start: 20170809
  10. JANTOVEN [Suspect]
     Active Substance: WARFARIN SODIUM
     Indication: ENTEROSTOMY
     Route: 065
     Dates: start: 20170830
  11. JANTOVEN [Suspect]
     Active Substance: WARFARIN SODIUM
     Indication: THROMBOSIS PROPHYLAXIS
     Route: 048
     Dates: start: 20170902, end: 20170905
  12. METOPROLOL. [Concomitant]
     Active Substance: METOPROLOL
     Route: 048
  13. FEXOFENADINE [Concomitant]
     Active Substance: FEXOFENADINE\FEXOFENADINE HYDROCHLORIDE
     Route: 065
  14. POTASSIUM [Concomitant]
     Active Substance: POTASSIUM
     Route: 065

REACTIONS (7)
  - Fatigue [Unknown]
  - International normalised ratio increased [Unknown]
  - Weight increased [Unknown]
  - Sluggishness [Unknown]
  - International normalised ratio decreased [Unknown]
  - Fluid retention [Unknown]
  - Drug ineffective [Unknown]

NARRATIVE: CASE EVENT DATE: 2017
